FAERS Safety Report 9567817 (Version 1)
Quarter: 2013Q3

REPORT INFORMATION
  Report Type: Spontaneous
  Country: US (occurrence: US)
  Receive Date: 20130930
  Receipt Date: 20130930
  Transmission Date: 20140515
  Serious: No
  Sender: FDA-Public Use
  Company Number: US-AMGEN-USASP2013021179

PATIENT
  Age: 67 Year
  Sex: Male
  Weight: 93.42 kg

DRUGS (18)
  1. ENBREL [Suspect]
     Indication: RHEUMATOID ARTHRITIS
     Dosage: 50 MG, QWK
     Route: 058
  2. BYETTA [Concomitant]
     Dosage: 10 MUG, UNK
  3. FOLIC ACID [Concomitant]
     Dosage: UNK
  4. VITAMIN C                          /00008001/ [Concomitant]
     Dosage: 500 MG, UNK
  5. ASPIRIN [Concomitant]
     Dosage: 81 MG, UNK
  6. VITAMIN D                          /00107901/ [Concomitant]
     Dosage: 1000 UNIT, UNK
  7. FISH OIL [Concomitant]
     Dosage: UNK
  8. PLAVIX [Concomitant]
     Dosage: 75 MG, UNK
  9. CRESTOR [Concomitant]
     Dosage: 5 MG, UNK
  10. VITAMIN B-1 [Concomitant]
     Dosage: 50 MG, UNK
  11. NITROGLYCERIN [Concomitant]
     Dosage: 6.5 MG, TID
  12. GLIPIZIDE [Concomitant]
     Dosage: 5 MG, UNK
  13. NOVOLOG [Concomitant]
     Dosage: UNK
  14. LISINOPRIL [Concomitant]
     Dosage: 40 MG, UNK
  15. LANTUS [Concomitant]
     Dosage: 100 ML, UNK
  16. METHOTREXATE [Concomitant]
     Dosage: 2.5 MG, UNK
  17. AMLODIPINE [Concomitant]
     Dosage: 2.5 MG, UNK
  18. CELEBREX [Concomitant]
     Dosage: 50 MG, UNK

REACTIONS (1)
  - Drug ineffective [Unknown]
